FAERS Safety Report 5462175-5 (Version None)
Quarter: 2007Q3

REPORT INFORMATION
  Report Type: 
  Country: None (occurrence: None)
  Receive Date: 20070920
  Receipt Date: 20070516
  Transmission Date: 20080115
  Serious: No
  Sender: FDA-Public Use
  Company Number: A0651331A

PATIENT
  Age: 70 Year
  Sex: Female

DRUGS (1)
  1. ABREVA [Suspect]
     Dates: start: 20070502, end: 20070511

REACTIONS (5)
  - DRY MOUTH [None]
  - GLOSSODYNIA [None]
  - LIP DRY [None]
  - NERVOUSNESS [None]
  - SWOLLEN TONGUE [None]
